FAERS Safety Report 6387364-7 (Version None)
Quarter: 2009Q3

REPORT INFORMATION
  Report Type: 
  Country: None (occurrence: None)
  Receive Date: 20090930
  Receipt Date: 20090914
  Transmission Date: 20100115
  Serious: Yes (Death)
  Sender: FDA-Public Use
  Company Number: 2009AL000707

PATIENT
  Sex: Male

DRUGS (55)
  1. DIGOXIN [Suspect]
     Indication: HEART RATE IRREGULAR
     Dosage: 0.25MG, DAILY, PO
     Route: 048
  2. DIGOXIN [Suspect]
     Dosage: 0.125MG, DAILY, PO
     Route: 048
  3. COREG [Concomitant]
  4. COUMADIN [Concomitant]
  5. NEXIUM [Concomitant]
  6. NABUMETONE [Concomitant]
  7. FOLIC ACID [Concomitant]
  8. ARAVA [Concomitant]
  9. LORAZEPAM [Concomitant]
  10. METHOTREXATE [Concomitant]
  11. LOMOTIL [Concomitant]
  12. DOXICYCLINE [Concomitant]
  13. LASIX [Concomitant]
  14. OXYGEN [Concomitant]
  15. JANTOVEN [Concomitant]
  16. NITROGLYCERIN [Concomitant]
  17. MOBIC [Concomitant]
  18. HYDROCODONE [Concomitant]
  19. ALEVE [Concomitant]
  20. LIPITOR [Concomitant]
  21. POTASSIUM CHLORIDE [Concomitant]
  22. NABUMETONE [Concomitant]
  23. LASIX [Concomitant]
  24. PREDNISONE [Concomitant]
  25. NITROSTAT [Concomitant]
  26. PANNAZ [Concomitant]
  27. DOCUSATE [Concomitant]
  28. BIDEX [Concomitant]
  29. WARFARIN SODIUM [Concomitant]
  30. TRAMADOL HCL [Concomitant]
  31. ALBUTEROL [Concomitant]
  32. DIPHENOXYLATE HCL + ATROPINE SULFATE [Concomitant]
  33. UNIPHYL [Concomitant]
  34. ALLEGRA D 24 HOUR [Concomitant]
  35. TARCEVA [Concomitant]
  36. FLUCONAZOLE [Concomitant]
  37. CEPHALEXIN [Concomitant]
  38. ANZEMET [Concomitant]
  39. AMIODARONE [Concomitant]
  40. PLAVIX [Concomitant]
  41. RANITIDINE [Concomitant]
  42. GUAIFENEX [Concomitant]
  43. CEFUROXIME [Concomitant]
  44. CIPROFLOXACIN HYDROCHLORIDE [Concomitant]
  45. FOLBEE [Concomitant]
  46. LEVAQUIN [Concomitant]
  47. AMOXIC/CLAV [Concomitant]
  48. LORATADINE [Concomitant]
  49. AVELOX [Concomitant]
  50. DEXAMETHASONE TAB [Concomitant]
  51. PROMETHAZINE [Concomitant]
  52. ONDANSETRON [Concomitant]
  53. CARVEDILOL [Concomitant]
  54. GRIS-PEG [Concomitant]
  55. MEXILETINE HYDROCHLORIDE [Concomitant]

REACTIONS (19)
  - ABDOMINAL DISTENSION [None]
  - ACUTE PULMONARY OEDEMA [None]
  - ANXIETY [None]
  - CHRONIC OBSTRUCTIVE PULMONARY DISEASE [None]
  - ECONOMIC PROBLEM [None]
  - FLUID OVERLOAD [None]
  - HEADACHE [None]
  - HEMIPARESIS [None]
  - JAUNDICE [None]
  - LEFT VENTRICULAR DYSFUNCTION [None]
  - LUNG ADENOCARCINOMA [None]
  - MULTIPLE INJURIES [None]
  - MUSCULAR WEAKNESS [None]
  - MYOCARDIAL INFARCTION [None]
  - NAUSEA [None]
  - PAIN [None]
  - RENAL FAILURE [None]
  - SUPRAVENTRICULAR EXTRASYSTOLES [None]
  - THERAPEUTIC AGENT TOXICITY [None]
